FAERS Safety Report 8147211-X (Version None)
Quarter: 2012Q1

REPORT INFORMATION
  Report Type: 
  Country: None (occurrence: None)
  Receive Date: 20120218
  Receipt Date: 20110121
  Transmission Date: 20120608
  Serious: No
  Sender: FDA-Public Use
  Company Number: US-ALLERGAN-1100975US

PATIENT
  Age: 54 Year
  Sex: Female

DRUGS (1)
  1. BOTULINUM TOXIN TYPE A [Suspect]
     Indication: MUSCLE SPASMS
     Dosage: 80 UNITS, SINGLE
     Route: 030
     Dates: start: 20101227, end: 20101227

REACTIONS (3)
  - HEADACHE [None]
  - HYPERAESTHESIA [None]
  - NAUSEA [None]
